FAERS Safety Report 5940652-8 (Version None)
Quarter: 2008Q4

REPORT INFORMATION
  Report Type: 
  Country: None (occurrence: None)
  Receive Date: 20081103
  Receipt Date: 20081103
  Transmission Date: 20090506
  Serious: Yes (Life-Threatening, Hospitalization)
  Sender: FDA-Public Use
  Company Number: None

PATIENT
  Sex: Female
  Weight: 65.7716 kg

DRUGS (3)
  1. LAMICTAL [Suspect]
     Dates: start: 20060101, end: 20070101
  2. MIRTAZAPINE [Concomitant]
  3. CYMBALTA [Concomitant]

REACTIONS (1)
  - MALAISE [None]
